FAERS Safety Report 6924593-5 (Version None)
Quarter: 2010Q3

REPORT INFORMATION
  Report Type: 
  Country: None (occurrence: None)
  Receive Date: 20100816
  Receipt Date: 20100813
  Transmission Date: 20110219
  Serious: Yes (Hospitalization)
  Sender: FDA-Public Use
  Company Number: CH-SANOFI-AVENTIS-2010SA036770

PATIENT
  Sex: Male

DRUGS (8)
  1. PLAVIX [Suspect]
     Route: 048
     Dates: start: 20090601
  2. INDOCIN [Suspect]
     Indication: GOUTY ARTHRITIS
     Route: 048
     Dates: start: 20100226, end: 20100311
  3. ASPIRIN [Suspect]
     Route: 048
     Dates: start: 20090601
  4. MEPHANOL [Concomitant]
     Indication: PRODUCT USED FOR UNKNOWN INDICATION
     Dates: start: 20090226
  5. METOPROLOL SUCCINATE [Concomitant]
     Indication: PRODUCT USED FOR UNKNOWN INDICATION
  6. DIOVANE [Concomitant]
     Indication: PRODUCT USED FOR UNKNOWN INDICATION
     Route: 048
  7. AMLODIPINE [Concomitant]
     Indication: PRODUCT USED FOR UNKNOWN INDICATION
  8. ATORVASTATIN [Concomitant]
     Indication: PRODUCT USED FOR UNKNOWN INDICATION

REACTIONS (6)
  - ANAEMIA [None]
  - DRUG ABUSE [None]
  - DUODENAL ULCER [None]
  - GASTRITIS EROSIVE [None]
  - GASTROINTESTINAL HAEMORRHAGE [None]
  - SYNCOPE [None]
